FAERS Safety Report 6221923-7 (Version None)
Quarter: 2009Q2

REPORT INFORMATION
  Report Type: 
  Country: None (occurrence: None)
  Receive Date: 20090611
  Receipt Date: 20090602
  Transmission Date: 20091009
  Serious: Yes (Life-Threatening)
  Sender: FDA-Public Use
  Company Number: JP-PFIZER INC-2009193327

PATIENT
  Age: 75 Year

DRUGS (3)
  1. NORVASC [Suspect]
     Dosage: 5 MG, 1X/DAY
     Route: 048
  2. OLMESARTAN MEDOXOMIL [Suspect]
     Indication: ESSENTIAL HYPERTENSION
     Dosage: 10 MG, 1X/DAY
     Route: 048
     Dates: start: 20061106
  3. OLMESARTAN MEDOXOMIL [Suspect]
     Dosage: 20MG
     Route: 048

REACTIONS (2)
  - LIP AND/OR ORAL CAVITY CANCER [None]
  - RASH [None]
